FAERS Safety Report 11923910 (Version 2)
Quarter: 2016Q1

REPORT INFORMATION
  Report Type: Report from Study
  Country: US (occurrence: US)
  Receive Date: 20160118
  Receipt Date: 20160129
  Transmission Date: 20160526
  Serious: Yes (Death, Other)
  Sender: FDA-Public Use
  Company Number: US-AMGEN-USASL2016004184

PATIENT
  Age: 85 Year
  Sex: Male
  Weight: 69.84 kg

DRUGS (13)
  1. ASPIRIN 81 [Concomitant]
     Active Substance: ASPIRIN
     Indication: STENOSIS
     Dosage: 81 MG, QOD
     Route: 048
  2. DIGOXIN. [Concomitant]
     Active Substance: DIGOXIN
     Dosage: 0.125 MG, QD
     Route: 048
  3. ACETAMINOPHEN W/HYDROCODONE [Concomitant]
     Active Substance: ACETAMINOPHEN\HYDROCODONE
     Indication: LUMBAR SPINAL STENOSIS
     Dosage: 7.5-325 MG, Q6H
     Route: 048
  4. VITAMIN D                          /00107901/ [Concomitant]
     Active Substance: ERGOCALCIFEROL
     Indication: OSTEOPENIA
     Dosage: 2000 UNIT, QD
  5. DILTIAZEM HCL [Concomitant]
     Active Substance: DILTIAZEM HYDROCHLORIDE
     Dosage: 180 MG, QD
  6. PROLIA [Suspect]
     Active Substance: DENOSUMAB
     Indication: OSTEOPENIA
     Dosage: 60 MG/ML, Q6MO
     Route: 058
     Dates: start: 20150318, end: 20150818
  7. VALSARTAN + HIDROCLOROTIAZIDA [Concomitant]
     Active Substance: HYDROCHLOROTHIAZIDE\VALSARTAN
     Indication: HYPERTENSION
     Dosage: (160-12.5 MG), QD
     Route: 048
  8. PREDNISONE. [Concomitant]
     Active Substance: PREDNISONE
     Indication: ARTHROPATHY
     Dosage: 5 MG, BID
     Route: 048
  9. METFORMIN HYDROCHLORIDE. [Concomitant]
     Active Substance: METFORMIN HYDROCHLORIDE
     Indication: TYPE 2 DIABETES MELLITUS
     Dosage: 500 MG (3 TABLETS), QD
     Route: 048
  10. TERAZOSIN HCL [Concomitant]
     Active Substance: TERAZOSIN HYDROCHLORIDE
     Indication: HYPERTENSION
     Dosage: 10 MG, QD
  11. MEGACE ES [Concomitant]
     Active Substance: MEGESTROL ACETATE
     Indication: WEIGHT DECREASED
     Dosage: (625 MG/5ML), BID
  12. WARFARIN SODIUM. [Concomitant]
     Active Substance: WARFARIN SODIUM
     Indication: ATRIAL FIBRILLATION
     Dosage: 5 MG, QD
     Route: 048
  13. CALCIUM [Concomitant]
     Active Substance: CALCIUM
     Indication: OSTEOPENIA
     Dosage: 1 DF, BID
     Route: 048

REACTIONS (19)
  - Asthenia [Unknown]
  - Post procedural hypothyroidism [Unknown]
  - Walking aid user [Unknown]
  - Pain in extremity [Unknown]
  - Head injury [Unknown]
  - Fatigue [Unknown]
  - Constipation [Unknown]
  - Haemorrhage [Unknown]
  - Depression [Unknown]
  - Balance disorder [Unknown]
  - Arteriosclerosis coronary artery [Unknown]
  - Pain [Unknown]
  - Insomnia [Unknown]
  - Mobility decreased [Unknown]
  - Chronic obstructive pulmonary disease [Unknown]
  - Death [Fatal]
  - Fall [Unknown]
  - Laceration [Unknown]
  - Weight decreased [Unknown]

NARRATIVE: CASE EVENT DATE: 201512
